FAERS Safety Report 6839759-2 (Version None)
Quarter: 2010Q3

REPORT INFORMATION
  Report Type: 
  Country: None (occurrence: None)
  Receive Date: 20100708
  Receipt Date: 20100622
  Transmission Date: 20110219
  Serious: Yes (Life-Threatening)
  Sender: FDA-Public Use
  Company Number: DSJ-2010-10299

PATIENT
  Age: 56 Year
  Sex: Female
  Weight: 75 kg

DRUGS (12)
  1. OLMESARTAN MEDOXOMIL [Suspect]
     Indication: HYPERTENSION
     Dosage: 20 MG (20 MG, 1 IN 1 D), PER ORAL
     Route: 048
  2. CARVEDILOL [Suspect]
     Indication: PRODUCT USED FOR UNKNOWN INDICATION
     Dosage: 30 MG (10 MG, 3 IN 1 D), PER ORAL
     Route: 048
     Dates: start: 20100401
  3. VERAPAMIL HCL [Suspect]
     Indication: PRODUCT USED FOR UNKNOWN INDICATION
     Dosage: 120 MG (40 MG, 3 IN 1 D), PER ORAL
     Route: 048
     Dates: start: 20100401
  4. LENDORMIN D (BROTIZOLAM) (TABLET) (BROTIZOLAM) [Concomitant]
  5. TEGRETOL (CARBAMAZEPINE) (TABLET) (CARBAMAZEPINE) [Concomitant]
  6. PLAVIX [Concomitant]
  7. TAKEPRON (LANSOPRAZOLE) (TABLET) (LANSOPRAZOLE) [Concomitant]
  8. AMOBAN (ZOPICLONE) (TABLET) (ZOPICLONE) [Concomitant]
  9. MYSLEE (ZOLPIDEM TARTRATE) (TABLET) (ZOLPIDEM TARTRATE) [Concomitant]
  10. ONON (PRANLUKAST) (CAPSULE) (PRANLUKAST) [Concomitant]
  11. LIPITOR [Concomitant]
  12. PURSENNID (SENNOSIDE A+B) (TABLET) (SENNOSIDE A+B) [Concomitant]

REACTIONS (6)
  - CHEST PAIN [None]
  - DEPRESSED LEVEL OF CONSCIOUSNESS [None]
  - NODAL RHYTHM [None]
  - OVERDOSE [None]
  - SHOCK [None]
  - SICK SINUS SYNDROME [None]
